FAERS Safety Report 5397436-1 (Version None)
Quarter: 2007Q3

REPORT INFORMATION
  Report Type: 
  Country: None (occurrence: None)
  Receive Date: 20070726
  Receipt Date: 20070718
  Transmission Date: 20080115
  Serious: Yes (Hospitalization)
  Sender: FDA-Public Use
  Company Number: US-JNJFOC-20070704554

PATIENT
  Sex: Female
  Weight: 76.66 kg

DRUGS (3)
  1. FENTANYL TRANSDERMAL SYSTEM [Suspect]
     Indication: BACK PAIN
     Route: 062
  2. OXYCODONE HCL [Concomitant]
     Indication: BREAKTHROUGH PAIN
     Dosage: 7.5 - 15MG, 1-2 TABLETS AS NEEDED
     Route: 048
  3. SOMA [Concomitant]
     Indication: MUSCLE RELAXANT THERAPY
     Route: 048

REACTIONS (5)
  - DIZZINESS EXERTIONAL [None]
  - DRUG EFFECT DECREASED [None]
  - INCORRECT DRUG ADMINISTRATION RATE [None]
  - INTERVERTEBRAL DISC PROTRUSION [None]
  - WRONG TECHNIQUE IN DRUG USAGE PROCESS [None]
